FAERS Safety Report 16161120 (Version 2)
Quarter: 2019Q2

REPORT INFORMATION
  Report Type: Report from Study
  Country: CR (occurrence: CR)
  Receive Date: 20190405
  Receipt Date: 20190424
  Transmission Date: 20190711
  Serious: Yes (Other)
  Sender: FDA-Public Use
  Company Number: CR-SA-2019SA092052

PATIENT
  Age: 77 Year
  Sex: Female

DRUGS (2)
  1. HYDROCHLOROTHIAZIDE/IRBESARTAN [Suspect]
     Active Substance: HYDROCHLOROTHIAZIDE\IRBESARTAN
     Indication: HYPERTENSION
     Dosage: 1 DF (1 ORAL TABLET OF 75 MG OF IRBESARTAN + 100 MG OF HYDROCHLOROTHIAZIDE, EVERY 24 HOURS), QD
     Route: 048
     Dates: start: 2014, end: 2015
  2. ACETYLSALICYLIC ACID/CLOPIDOGREL BISULFATE [Suspect]
     Active Substance: ASPIRIN\CLOPIDOGREL BISULFATE
     Indication: PROPHYLAXIS
     Dosage: 1 DF (1 ORAL TABLET OF 75 MG OF CLOPIDOGREL + 100 MG OF ACETYLSALICYLIC ACID EVERY 24 HOURS), QD
     Route: 048
     Dates: start: 2014

REACTIONS (1)
  - Dementia Alzheimer^s type [Not Recovered/Not Resolved]

NARRATIVE: CASE EVENT DATE: 2018
